FAERS Safety Report 12197809 (Version 1)
Quarter: 2016Q1

REPORT INFORMATION
  Report Type: Spontaneous
  Country: US (occurrence: US)
  Receive Date: 20160322
  Receipt Date: 20160322
  Transmission Date: 20160526
  Serious: No
  Sender: FDA-Public Use
  Company Number: US-JNJFOC-20160302081

PATIENT
  Sex: Female
  Weight: 56.25 kg

DRUGS (5)
  1. LEVOTHYROXINE. [Concomitant]
     Active Substance: LEVOTHYROXINE
     Indication: THYROID DISORDER
     Route: 048
  2. AMITRIPTYLIN [Concomitant]
     Active Substance: AMITRIPTYLINE
     Indication: DEPRESSION
     Dosage: DOSE: 4, 25 MG AND 2, 10 MG TABLETS
     Route: 048
     Dates: start: 1992
  3. RISPERDAL [Suspect]
     Active Substance: RISPERIDONE
     Indication: HYPERSENSITIVITY
     Route: 048
  4. RISPERIDONE. [Suspect]
     Active Substance: RISPERIDONE
     Indication: HYPERSENSITIVITY
     Route: 048
  5. COREG [Concomitant]
     Active Substance: CARVEDILOL
     Indication: CARDIAC FAILURE CONGESTIVE
     Route: 048
     Dates: start: 2010

REACTIONS (4)
  - Hypersensitivity [Recovered/Resolved]
  - Product use issue [Unknown]
  - Palpitations [Not Recovered/Not Resolved]
  - Myalgia [Recovered/Resolved]
